FAERS Safety Report 14872964 (Version 1)
Quarter: 2018Q2

REPORT INFORMATION
  Report Type: Spontaneous
  Country: US (occurrence: US)
  Receive Date: 20180510
  Receipt Date: 20180510
  Transmission Date: 20180711
  Serious: Yes (Hospitalization)
  Sender: FDA-Public Use
  Company Number: US-ACCORD-066836

PATIENT
  Age: 66 Year
  Sex: Male
  Weight: 92.8 kg

DRUGS (20)
  1. DOCUSATE SODIUM/SENNOSIDE A+B [Concomitant]
     Dates: start: 20170404
  2. FISH OIL [Concomitant]
     Active Substance: FISH OIL
     Dates: start: 20170404
  3. OMEPRAZOLE. [Concomitant]
     Active Substance: OMEPRAZOLE
     Dates: start: 20161208
  4. CHONDROITIN/GLUCOSAMINE [Concomitant]
     Dates: start: 20170404
  5. BENZONATATE. [Concomitant]
     Active Substance: BENZONATATE
     Dates: start: 20161222
  6. GABAPENTIN. [Concomitant]
     Active Substance: GABAPENTIN
     Dates: start: 20161208
  7. PYRIDOXINE [Concomitant]
     Active Substance: PYRIDOXINE
     Dates: start: 20170308
  8. TOPOTECAN [Suspect]
     Active Substance: TOPOTECAN HYDROCHLORIDE
     Indication: SMALL CELL LUNG CANCER
     Dosage: 2.8 MG TOTAL DAILY
     Route: 041
     Dates: start: 20180317
  9. HYDROCHLOROTHIAZIDE/LOSARTAN [Concomitant]
     Dates: start: 20170404
  10. XGEVA [Concomitant]
     Active Substance: DENOSUMAB
     Dates: start: 20171205
  11. LOMOTIL [Concomitant]
     Active Substance: ATROPINE SULFATE\DIPHENOXYLATE HYDROCHLORIDE
     Dates: start: 20180111
  12. COLECALCIFEROL [Concomitant]
     Active Substance: CHOLECALCIFEROL
     Dates: start: 20120306
  13. MEMANTINE/MEMANTINE HYDROCHLORIDE [Concomitant]
     Dates: start: 20170705
  14. COMPAZINE [Concomitant]
     Active Substance: PROCHLORPERAZINE MALEATE
     Dates: start: 20170111
  15. FLONASE [Concomitant]
     Active Substance: FLUTICASONE PROPIONATE
     Dates: start: 20130330
  16. CETIRIZINE [Concomitant]
     Active Substance: CETIRIZINE HYDROCHLORIDE
     Dates: start: 20171107, end: 20180328
  17. MARINOL [Concomitant]
     Active Substance: DRONABINOL
     Dates: start: 20170222
  18. ONDANSETRON [Concomitant]
     Active Substance: ONDANSETRON
     Dates: start: 20170111
  19. CELEBREX [Concomitant]
     Active Substance: CELECOXIB
     Dates: start: 20050317
  20. LEVOTHYROXINE. [Concomitant]
     Active Substance: LEVOTHYROXINE
     Dates: start: 20070920

REACTIONS (6)
  - Chronic obstructive pulmonary disease [Unknown]
  - Atrial flutter [Unknown]
  - Anaemia [Recovered/Resolved with Sequelae]
  - Thrombocytopenia [Unknown]
  - Supraventricular tachycardia [Recovered/Resolved]
  - Pyrexia [Unknown]

NARRATIVE: CASE EVENT DATE: 20180320
